FAERS Safety Report 5712356-8 (Version None)
Quarter: 2008Q2

REPORT INFORMATION
  Report Type: 
  Country: None (occurrence: None)
  Receive Date: 20080418
  Receipt Date: 20080407
  Transmission Date: 20081010
  Serious: Yes (Hospitalization, Other)
  Sender: FDA-Public Use
  Company Number: JHP200800098

PATIENT
  Age: 35 Year
  Sex: Male

DRUGS (3)
  1. EPINEPHRINE [Suspect]
     Indication: ALLERGY TO VENOM
     Dosage: 0.5 ML, TWICE (1:1000), INTRAMUSCULAR; 1 ML, TWICE (1:10,000), INTRAVENOUS
  2. EPIPEN [Suspect]
     Indication: ALLERGY TO VENOM
     Dosage: INTRAMUSCULAR
     Route: 030
  3. ALBUTEROL /00139501/ (SALBUTAMOL) [Concomitant]

REACTIONS (12)
  - BLOOD CREATINE PHOSPHOKINASE INCREASED [None]
  - BLOOD CREATINE PHOSPHOKINASE MB INCREASED [None]
  - BLOOD PRESSURE INCREASED [None]
  - BUNDLE BRANCH BLOCK [None]
  - CARDIOMYOPATHY [None]
  - CHILLS [None]
  - DILATATION VENTRICULAR [None]
  - ELECTROCARDIOGRAM ST SEGMENT DEPRESSION [None]
  - ELECTROCARDIOGRAM ST-T CHANGE [None]
  - HYPOKALAEMIA [None]
  - LOSS OF CONSCIOUSNESS [None]
  - PALLOR [None]
